FAERS Safety Report 13944577 (Version 1)
Quarter: 2017Q3

REPORT INFORMATION
  Report Type: Spontaneous
  Country: US (occurrence: US)
  Receive Date: 20170907
  Receipt Date: 20170907
  Transmission Date: 20171128
  Serious: Yes (Other)
  Sender: FDA-Public Use
  Company Number: US-ROCHE-1269172

PATIENT
  Sex: Female

DRUGS (1)
  1. RITUXAN [Suspect]
     Active Substance: RITUXIMAB
     Indication: B-CELL LYMPHOMA
     Route: 065
     Dates: start: 200701, end: 201304

REACTIONS (8)
  - Fatigue [Unknown]
  - Peripheral swelling [Unknown]
  - Vomiting [Unknown]
  - Nausea [Unknown]
  - Lymphadenopathy [Unknown]
  - Night sweats [Unknown]
  - Hypersomnia [Unknown]
  - Dyspnoea [Unknown]
